FAERS Safety Report 24451383 (Version 1)
Quarter: 2024Q4

REPORT INFORMATION
  Report Type: Spontaneous
  Country: US (occurrence: US)
  Receive Date: 20241017
  Receipt Date: 20241017
  Transmission Date: 20250115
  Serious: No
  Sender: FENNEC PHARMACEUTICALS
  Company Number: US-FENNEC PHARMACEUTICALS, INC.-2024FEN00035

PATIENT

DRUGS (1)
  1. PEDMARK [Suspect]
     Active Substance: SODIUM THIOSULFATE
     Route: 065

REACTIONS (2)
  - Tremor [Recovered/Resolved]
  - Rash [Recovered/Resolved]
